FAERS Safety Report 26209519 (Version 1)
Quarter: 2025Q4

REPORT INFORMATION
  Report Type: Spontaneous
  Country: AU (occurrence: AU)
  Receive Date: 20251229
  Receipt Date: 20251229
  Transmission Date: 20260118
  Serious: Yes (Death, Other)
  Sender: MYLAN
  Company Number: AU-MYLANLABS-2025M1110554

PATIENT
  Sex: Male

DRUGS (1)
  1. CLOZARIL [Suspect]
     Active Substance: CLOZAPINE
     Indication: Schizophrenia
     Dosage: 50 MILLIGRAM, QD
     Route: 061
     Dates: start: 20170504

REACTIONS (4)
  - Fall [Fatal]
  - Head injury [Fatal]
  - Poisoning [Unknown]
  - Antipsychotic drug level increased [Unknown]
